FAERS Safety Report 20529745 (Version 1)
Quarter: 2022Q1

REPORT INFORMATION
  Report Type: Report from Study
  Country: US (occurrence: US)
  Receive Date: 20220301
  Receipt Date: 20220301
  Transmission Date: 20220424
  Serious: Yes (Other)
  Sender: FDA-Public Use
  Company Number: US-TEVA-771715USA

PATIENT
  Age: 44 Year
  Sex: Male

DRUGS (9)
  1. AUSTEDO [Suspect]
     Active Substance: DEUTETRABENAZINE
     Indication: Huntington^s disease
     Dosage: 54 MILLIGRAM DAILY;
     Route: 065
     Dates: start: 20170501
  2. AUSTEDO [Suspect]
     Active Substance: DEUTETRABENAZINE
     Dosage: 69 MILLIGRAM DAILY; 36 MILLIGRAMS IN A.M. AND 33 MILLIGRAMS IN EVE
     Route: 065
     Dates: start: 201705
  3. AUSTEDO [Suspect]
     Active Substance: DEUTETRABENAZINE
     Dosage: 84 MILLIGRAM DAILY; FOUR 12 MG TABLETS IN MORNING,THREE 12MG TABLETS IN EVENING
     Route: 065
     Dates: start: 20170620
  4. AUSTEDO [Suspect]
     Active Substance: DEUTETRABENAZINE
     Dosage: 90 MILLIGRAM DAILY; 45 MG TWICE DAILY (THREE 12 MG TABLETS PLUS 9 MG TABLET TWICE DAILY)
     Route: 065
  5. RISPERIDONE [Suspect]
     Active Substance: RISPERIDONE
     Route: 065
  6. BUPROPION [Concomitant]
     Active Substance: BUPROPION
  7. CITALOPRAM [Concomitant]
     Active Substance: CITALOPRAM HYDROBROMIDE
  8. LISINOPRIL [Concomitant]
     Active Substance: LISINOPRIL
  9. OMEPRAZOLE [Concomitant]
     Active Substance: OMEPRAZOLE

REACTIONS (10)
  - Chorea [Recovering/Resolving]
  - Fall [Not Recovered/Not Resolved]
  - Injury [Recovered/Resolved]
  - Feeling drunk [Recovering/Resolving]
  - Dysarthria [Recovering/Resolving]
  - Speech disorder [Recovering/Resolving]
  - Huntington^s disease [Unknown]
  - Disease progression [Unknown]
  - Depression [Unknown]
  - Product use issue [Unknown]

NARRATIVE: CASE EVENT DATE: 20170101
